FAERS Safety Report 5968441-9 (Version None)
Quarter: 2008Q4

REPORT INFORMATION
  Report Type: 
  Country: None (occurrence: None)
  Receive Date: 20081121
  Receipt Date: 20081121
  Transmission Date: 20090506
  Serious: No
  Sender: FDA-Public Use
  Company Number: None

PATIENT
  Age: 50 Year
  Sex: Male
  Weight: 78.9259 kg

DRUGS (2)
  1. MORPHINE SULFATE [Suspect]
     Indication: BACK PAIN
     Dosage: 15 MG TWICE PO
     Route: 048
     Dates: start: 20081111, end: 20081118
  2. MORPHINE SULFATE [Suspect]
     Indication: POST PROCEDURAL COMPLICATION
     Dosage: 15 MG TWICE PO
     Route: 048
     Dates: start: 20081111, end: 20081118

REACTIONS (4)
  - COLD SWEAT [None]
  - INSOMNIA [None]
  - PRODUCT QUALITY ISSUE [None]
  - PRURITUS GENERALISED [None]
